FAERS Safety Report 10686297 (Version 1)
Quarter: 2014Q4

REPORT INFORMATION
  Report Type: Spontaneous
  Country: US (occurrence: US)
  Receive Date: 20141231
  Receipt Date: 20141231
  Transmission Date: 20150529
  Serious: No
  Sender: FDA-Public Use
  Company Number: US-GLAXOSMITHKLINE-US2014GSK044044

PATIENT
  Age: 69 Year
  Sex: Female

DRUGS (7)
  1. BUPROPION PROLONGED-RELEASE TABLET [Suspect]
     Active Substance: BUPROPION
     Dosage: 75 MG, QD
     Route: 048
  2. BUPROPION PROLONGED-RELEASE TABLET [Suspect]
     Active Substance: BUPROPION
     Dosage: 100 MG, QD
     Route: 048
  3. INSULIN [Concomitant]
     Active Substance: INSULIN NOS
  4. PAIN MEDICATIONS [Concomitant]
     Active Substance: UNSPECIFIED INGREDIENT
  5. BUPROPION PROLONGED-RELEASE TABLET [Suspect]
     Active Substance: BUPROPION
     Indication: DEPRESSION
     Dosage: 25 MG, QD
     Route: 048
     Dates: start: 20141010
  6. BUPROPION PROLONGED-RELEASE TABLET [Suspect]
     Active Substance: BUPROPION
     Dosage: 150 MG, QD
     Route: 048
  7. BUPROPION PROLONGED-RELEASE TABLET [Suspect]
     Active Substance: BUPROPION
     Dosage: 200 MG, QD
     Route: 048

REACTIONS (4)
  - Blood glucose decreased [Recovered/Resolved]
  - Tremor [Not Recovered/Not Resolved]
  - Nervousness [Not Recovered/Not Resolved]
  - Wrong technique in drug usage process [Unknown]

NARRATIVE: CASE EVENT DATE: 20141010
